FAERS Safety Report 5680829-2 (Version None)
Quarter: 2008Q1

REPORT INFORMATION
  Report Type: 
  Country: None (occurrence: None)
  Receive Date: 20080325
  Receipt Date: 20080312
  Transmission Date: 20080703
  Serious: Yes (Death, Hospitalization, Other)
  Sender: FDA-Public Use
  Company Number: A-US2008-19654

PATIENT
  Age: 70 Year
  Sex: Female

DRUGS (29)
  1. TRACLEER [Suspect]
     Indication: PULMONARY HYPERTENSION
     Dosage: ORAL
     Route: 048
     Dates: start: 20051101, end: 20080214
  2. NIFEREX  (POLYSACCHARIDE-IRON COMPLEX, FOLIC ACID, CYANOCOBALAMIN) [Concomitant]
  3. LIDOCAINE (LIDOCAINE HYDROCHLORIDE) [Concomitant]
  4. SINGULAIR [Concomitant]
  5. MIRAPEX [Concomitant]
  6. ACTONEL [Concomitant]
  7. RESTORIL [Concomitant]
  8. AMIODARONE HCL [Concomitant]
  9. ASTELIN [Concomitant]
  10. TESSALON [Concomitant]
  11. SIMVASTATIN [Concomitant]
  12. COLCHICUM JTL LIQ [Concomitant]
  13. AGGRENOX [Concomitant]
  14. LEXAPRO [Concomitant]
  15. FENOFIBRATE [Concomitant]
  16. NEURONTIN [Concomitant]
  17. XOPENEX [Concomitant]
  18. LISINOPRIL (LISINOPRIL DIHYDRATE) [Concomitant]
  19. TORSEMIDE [Concomitant]
  20. TOBRAMYCIN [Concomitant]
  21. DARVON [Concomitant]
  22. ATIVAN [Concomitant]
  23. ADVAIR (SALMETEROL XINAFOATE, FLUTICASONE PROPIONATE) [Concomitant]
  24. TRAZODONE (TRAZODONE HYDROCHLORIDE) [Concomitant]
  25. CALCITRIOL [Concomitant]
  26. VITAMIN D [Concomitant]
  27. OMEPRAZOLE [Concomitant]
  28. COUMADIN [Concomitant]
  29. ALDACTONE [Concomitant]

REACTIONS (19)
  - ACUTE PRERENAL FAILURE [None]
  - ANAEMIA [None]
  - CARDIAC FAILURE CONGESTIVE [None]
  - CATHETER RELATED INFECTION [None]
  - DEHYDRATION [None]
  - DIASTOLIC DYSFUNCTION [None]
  - DRUG TOXICITY [None]
  - HAEMORRHAGE [None]
  - HEPATIC STEATOSIS [None]
  - HEPATOMEGALY [None]
  - PACEMAKER COMPLICATION [None]
  - PNEUMONIA [None]
  - REFUSAL OF TREATMENT BY RELATIVE [None]
  - RENAL FAILURE [None]
  - RESPIRATORY FAILURE [None]
  - SEPSIS [None]
  - SICK SINUS SYNDROME [None]
  - STAPHYLOCOCCAL INFECTION [None]
  - THERAPEUTIC AGENT TOXICITY [None]
